FAERS Safety Report 14724008 (Version 2)
Quarter: 2018Q2

REPORT INFORMATION
  Report Type: Spontaneous
  Country: US (occurrence: US)
  Receive Date: 20180405
  Receipt Date: 20180427
  Transmission Date: 20180711
  Serious: Yes (Other)
  Sender: FDA-Public Use
  Company Number: US-TEVA-2018-US-876382

PATIENT
  Sex: Female

DRUGS (1)
  1. ALENDRONATE SODIUM. [Suspect]
     Active Substance: ALENDRONATE SODIUM
     Indication: OSTEOPOROSIS
     Dosage: DOSE STRENGTH: 70
     Route: 065

REACTIONS (7)
  - Nausea [Unknown]
  - Knee arthroplasty [Unknown]
  - Chest discomfort [Unknown]
  - Infection [Unknown]
  - Knee operation [Unknown]
  - Hip surgery [Unknown]
  - Anxiety [Unknown]

NARRATIVE: CASE EVENT DATE: 20170911
